FAERS Safety Report 4383712-8 (Version None)
Quarter: 2004Q2

REPORT INFORMATION
  Report Type: 
  Country: None (occurrence: None)
  Receive Date: 20040618
  Receipt Date: 20040609
  Transmission Date: 20050107
  Serious: Yes (Hospitalization, Other)
  Sender: FDA-Public Use
  Company Number: HQWYE433111JUN04

PATIENT
  Age: 51 Year
  Sex: Female

DRUGS (1)
  1. RAPAMUNE [Suspect]
     Indication: PROPHYLAXIS AGAINST TRANSPLANT REJECTION
     Dosage: 9 MG 1X PER 1 DAY
     Route: 048
     Dates: start: 19990721

REACTIONS (2)
  - ALLERGIC COLITIS [None]
  - IMMUNE SYSTEM DISORDER [None]
